FAERS Safety Report 22636202 (Version 4)
Quarter: 2023Q4

REPORT INFORMATION
  Report Type: Spontaneous
  Country: US (occurrence: US)
  Receive Date: 20230623
  Receipt Date: 20231227
  Transmission Date: 20240110
  Serious: No
  Sender: FDA-Public Use
  Company Number: US-PFIZER INC-PV202300109367

PATIENT
  Age: 92 Year
  Sex: Male

DRUGS (3)
  1. RETACRIT [Suspect]
     Active Substance: EPOETIN ALFA-EPBX
     Dosage: 40000 IU
  2. RETACRIT [Suspect]
     Active Substance: EPOETIN ALFA-EPBX
     Dosage: 40,000 U/ML, INJECT 1 ML UNDER THE SKIN ONCE A WEEK FOR HGB{11 G/DL
     Route: 058
  3. RETACRIT [Suspect]
     Active Substance: EPOETIN ALFA-EPBX
     Dosage: INJECT 4 MLS (4 OF THE 10,000 UNIT VIALS) UNDER THE SKIN ONCE A WEEK FOR HGB + LT; 11 G/DL
     Route: 058

REACTIONS (3)
  - Product selection error [Unknown]
  - Asthenia [Unknown]
  - Musculoskeletal pain [Unknown]
